FAERS Safety Report 6722681-X (Version None)
Quarter: 2010Q2

REPORT INFORMATION
  Report Type: 
  Country: None (occurrence: None)
  Receive Date: 20100512
  Receipt Date: 20100429
  Transmission Date: 20101027
  Serious: Yes (Other)
  Sender: FDA-Public Use
  Company Number: US-PFIZER INC-2010024038

PATIENT
  Sex: Female
  Weight: 71.202 kg

DRUGS (1)
  1. CHANTIX [Suspect]
     Indication: SMOKING CESSATION THERAPY
     Dosage: 0.5 MG, 1X/DAY
     Route: 048
     Dates: start: 20100201, end: 20100201

REACTIONS (11)
  - AGITATION [None]
  - APATHY [None]
  - DISCOMFORT [None]
  - EMOTIONAL DISORDER [None]
  - FATIGUE [None]
  - LAZINESS [None]
  - LETHARGY [None]
  - MENTAL IMPAIRMENT [None]
  - PERFORMANCE STATUS DECREASED [None]
  - SEDATION [None]
  - SLUGGISHNESS [None]
